FAERS Safety Report 19002350 (Version 2)
Quarter: 2022Q3

REPORT INFORMATION
  Report Type: Spontaneous
  Country: US (occurrence: US)
  Receive Date: 20210312
  Receipt Date: 20220701
  Transmission Date: 20221027
  Serious: Yes (Hospitalization, Other)
  Sender: FDA-Public Use
  Company Number: US-AMGEN-USASP2021036125

PATIENT
  Age: 69 Year
  Sex: Female

DRUGS (2)
  1. EVENITY [Suspect]
     Active Substance: ROMOSOZUMAB-AQQG
     Indication: Osteoporosis
     Dosage: UNK
     Route: 065
     Dates: start: 20191209, end: 20201111
  2. PROLIA [Suspect]
     Active Substance: DENOSUMAB
     Indication: Osteoporosis
     Dosage: UNK
     Route: 065
     Dates: start: 20150317, end: 20190520

REACTIONS (6)
  - Ejection fraction decreased [Unknown]
  - Cardiac valve disease [Unknown]
  - Cardiac failure congestive [Unknown]
  - Rib fracture [Unknown]
  - Fall [Unknown]
  - Bone density decreased [Unknown]

NARRATIVE: CASE EVENT DATE: 20210201
